FAERS Safety Report 23518576 (Version 1)
Quarter: 2024Q1

REPORT INFORMATION
  Report Type: Spontaneous
  Country: GB (occurrence: GB)
  Receive Date: 20240213
  Receipt Date: 20240213
  Transmission Date: 20240409
  Serious: Yes (Other)
  Sender: FDA-Public Use
  Company Number: GB-ANIPHARMA-2024-UK-000021

PATIENT
  Age: 76 Year
  Sex: 0

DRUGS (10)
  1. CANDESARTAN [Suspect]
     Active Substance: CANDESARTAN
     Indication: Product used for unknown indication
     Route: 048
  2. BISOPROLOL [Suspect]
     Active Substance: BISOPROLOL\BISOPROLOL FUMARATE
     Route: 048
  3. IBRUTINIB [Suspect]
     Active Substance: IBRUTINIB
     Dosage: DOSE TEXT: 140, EVERY DAY
     Route: 048
     Dates: start: 20210409, end: 20231024
  4. SULFAMETHOXAZOLE\TRIMETHOPRIM [Concomitant]
     Active Substance: SULFAMETHOXAZOLE\TRIMETHOPRIM
     Route: 048
     Dates: start: 20210826
  5. ALLOPURINOL [Concomitant]
     Active Substance: ALLOPURINOL
     Route: 065
     Dates: start: 20240205
  6. CLOPIDOGREL [Concomitant]
     Active Substance: CLOPIDOGREL BISULFATE
     Dosage: EVERY DAY
     Route: 048
     Dates: start: 20240205, end: 20240205
  7. SILDENAFIL [Concomitant]
     Active Substance: SILDENAFIL
     Route: 048
     Dates: start: 20180831
  8. LERCANIDIPINE [Concomitant]
     Active Substance: LERCANIDIPINE
     Route: 065
     Dates: start: 20230328
  9. SENNA [Concomitant]
     Active Substance: SENNA LEAF\SENNOSIDES\SENNOSIDES A AND B
     Route: 065
  10. DOXAZOSIN [Suspect]
     Active Substance: DOXAZOSIN MESYLATE
     Route: 048
     Dates: start: 20230328, end: 20240205

REACTIONS (1)
  - Thrombocytopenia [Unknown]

NARRATIVE: CASE EVENT DATE: 20230301
